FAERS Safety Report 16529652 (Version 1)
Quarter: 2019Q3

REPORT INFORMATION
  Report Type: Spontaneous
  Country: IT (occurrence: IT)
  Receive Date: 20190703
  Receipt Date: 20190703
  Transmission Date: 20191004
  Serious: Yes (Other)
  Sender: FDA-Public Use
  Company Number: IT-ELI_LILLY_AND_COMPANY-IT201906012303

PATIENT
  Age: 56 Year
  Sex: Female
  Weight: 89 kg

DRUGS (1)
  1. TRULICITY [Suspect]
     Active Substance: DULAGLUTIDE
     Indication: TYPE 1 DIABETES MELLITUS
     Dosage: 1.5 MG, WEEKLY (1/W)
     Route: 058
     Dates: start: 20190613

REACTIONS (8)
  - Off label use [Recovered/Resolved]
  - Dizziness [Recovered/Resolved with Sequelae]
  - Throat irritation [Recovered/Resolved with Sequelae]
  - Hiccups [Recovered/Resolved with Sequelae]
  - Nausea [Recovered/Resolved with Sequelae]
  - Vision blurred [Recovered/Resolved with Sequelae]
  - Loss of consciousness [Recovered/Resolved with Sequelae]
  - Vomiting [Recovered/Resolved with Sequelae]

NARRATIVE: CASE EVENT DATE: 20190613
